FAERS Safety Report 18306938 (Version 3)
Quarter: 2020Q4

REPORT INFORMATION
  Report Type: Spontaneous
  Country: US (occurrence: US)
  Receive Date: 20200924
  Receipt Date: 20201028
  Transmission Date: 20210113
  Serious: Yes (Hospitalization, Other)
  Sender: FDA-Public Use
  Company Number: US-VERTEX PHARMACEUTICALS-2020-017640

PATIENT
  Sex: Male
  Weight: 80 kg

DRUGS (2)
  1. TRIKAFTA [Suspect]
     Active Substance: ELEXACAFTOR\IVACAFTOR\TEZACAFTOR
     Indication: CYSTIC FIBROSIS
     Dosage: 100 MG ELEXACAFTOR/ 50 MG TEZACAFTOR/ 75 MG IVACAFTOR, 150MG IVACAFTOR, BID
     Route: 048
     Dates: start: 20191221
  2. MELATONIN [Concomitant]
     Active Substance: MELATONIN
     Dosage: UNK

REACTIONS (5)
  - Nasal congestion [Unknown]
  - Toothache [Recovered/Resolved]
  - Vomiting [Unknown]
  - Oral pain [Not Recovered/Not Resolved]
  - Gastrostomy closure [Unknown]

NARRATIVE: CASE EVENT DATE: 2020
